FAERS Safety Report 7278118-8 (Version None)
Quarter: 2011Q1

REPORT INFORMATION
  Report Type: 
  Country: None (occurrence: None)
  Receive Date: 20110207
  Receipt Date: 20110128
  Transmission Date: 20110831
  Serious: Yes (Hospitalization)
  Sender: FDA-Public Use
  Company Number: A0762220A

PATIENT
  Age: 46 Year
  Sex: Male
  Weight: 163.2 kg

DRUGS (9)
  1. GLIPIZIDE [Concomitant]
  2. NIFEDIPINE [Concomitant]
  3. VOLTAREN [Concomitant]
  4. QUINAPRIL [Concomitant]
  5. AVANDIA [Suspect]
     Dosage: 4MG TWICE PER DAY
     Route: 048
     Dates: start: 20040412, end: 20071207
  6. LASIX [Concomitant]
  7. CLONIDINE [Concomitant]
  8. METOPROLOL [Concomitant]
  9. POTASSIUM [Concomitant]

REACTIONS (4)
  - MYOCARDIAL ISCHAEMIA [None]
  - CARDIAC FAILURE CONGESTIVE [None]
  - ACUTE MYOCARDIAL INFARCTION [None]
  - CARDIOMYOPATHY [None]
